FAERS Safety Report 18050551 (Version 3)
Quarter: 2021Q2

REPORT INFORMATION
  Report Type: Report from Study
  Country: None (occurrence: US)
  Receive Date: 20200721
  Receipt Date: 20210412
  Transmission Date: 20210717
  Serious: Yes (Other)
  Sender: FDA-Public Use
  Company Number: US-ABBVIE-20K-163-3491030-00

PATIENT
  Sex: Male
  Weight: 104.42 kg

DRUGS (2)
  1. HUMIRA [Suspect]
     Active Substance: ADALIMUMAB
     Indication: PSORIASIS
     Route: 058
     Dates: start: 2017, end: 202010
  2. HUMIRA [Suspect]
     Active Substance: ADALIMUMAB
     Indication: PSORIASIS
     Route: 058

REACTIONS (3)
  - Skin haemorrhage [Not Recovered/Not Resolved]
  - Lung adenocarcinoma [Not Recovered/Not Resolved]
  - Skin fissures [Not Recovered/Not Resolved]

NARRATIVE: CASE EVENT DATE: 2018
